FAERS Safety Report 6621953-7 (Version None)
Quarter: 2010Q1

REPORT INFORMATION
  Report Type: 
  Country: None (occurrence: None)
  Receive Date: 20100223
  Receipt Date: 20091230
  Transmission Date: 20100710
  Serious: No
  Sender: FDA-Public Use
  Company Number: 003813

PATIENT
  Sex: Male

DRUGS (1)
  1. CIMZIA [Suspect]
     Dosage: 400 MG SUBCUTANEOUS
     Route: 058
     Dates: start: 20090324

REACTIONS (2)
  - ASTHENIA [None]
  - FATIGUE [None]
